FAERS Safety Report 10640800 (Version 1)
Quarter: 2014Q4

REPORT INFORMATION
  Report Type: Spontaneous
  Country: US (occurrence: None)
  Receive Date: 20141208
  Receipt Date: 20141208
  Transmission Date: 20150529
  Serious: No
  Sender: FDA-Public Use
  Company Number: None

PATIENT

DRUGS (2)
  1. TERBINAFINE [Suspect]
     Active Substance: TERBINAFINE
     Dosage: TABLET, ORAL, 250 MG, BOTTLE, 30 TABLETS
     Route: 048
  2. FINASTERIDE. [Suspect]
     Active Substance: FINASTERIDE
     Dosage: TABLET, ORAL 5 MG, BOTTLE, 90 TABLETS
     Route: 048

REACTIONS (5)
  - Product container issue [None]
  - Drug dispensing error [None]
  - Adverse drug reaction [None]
  - Wrong drug administered [None]
  - Product label confusion [None]
